FAERS Safety Report 23600239 (Version 2)
Quarter: 2024Q1

REPORT INFORMATION
  Report Type: Spontaneous
  Country: FR (occurrence: FR)
  Receive Date: 20240306
  Receipt Date: 20240319
  Transmission Date: 20240409
  Serious: Yes (Hospitalization, Other)
  Sender: FDA-Public Use
  Company Number: FR-B.Braun Medical Inc.-2154067

PATIENT
  Age: 73 Year
  Sex: Female
  Weight: 61 kg

DRUGS (14)
  1. ACETAMINOPHEN [Suspect]
     Active Substance: ACETAMINOPHEN
     Route: 042
     Dates: start: 20240115
  2. DIETARY SUPPLEMENT [Suspect]
     Active Substance: DIETARY SUPPLEMENT
  3. CHROMIC CHLORIDE\CUPROUS CHLORIDE\FERRIC CHLORIDE\MANGANESE CHLORIDE\P [Suspect]
     Active Substance: CHROMIC CHLORIDE\CUPROUS CHLORIDE\FERRIC CHLORIDE\MANGANESE CHLORIDE\POTASSIUM IODIDE\SODIUM FLUORID
  4. OCTREOTIDE ACETATE [Suspect]
     Active Substance: OCTREOTIDE ACETATE
  5. ESOMEPRAZOLE [Suspect]
     Active Substance: ESOMEPRAZOLE
  6. SIMVASTATIN [Suspect]
     Active Substance: SIMVASTATIN
  7. OLIMEL E [Suspect]
     Active Substance: AMINO ACIDS\DEXTROSE\ELECTROLYTES NOS\SOYBEAN OIL
  8. SODIUM CHLORIDE [Suspect]
     Active Substance: SODIUM CHLORIDE
  9. METOCLOPRAMIDE [Suspect]
     Active Substance: METOCLOPRAMIDE
  10. CERNEVIT [Suspect]
     Active Substance: VITAMINS
  11. TELMISARTAN [Suspect]
     Active Substance: TELMISARTAN
  12. HYDROCHLOROTHIAZIDE [Suspect]
     Active Substance: HYDROCHLOROTHIAZIDE
  13. MIDAZOLAM [Suspect]
     Active Substance: MIDAZOLAM
  14. ONDANSETRON [Suspect]
     Active Substance: ONDANSETRON

REACTIONS (1)
  - Thrombocytopenia [Recovering/Resolving]
